FAERS Safety Report 8068311-9 (Version None)
Quarter: 2012Q1

REPORT INFORMATION
  Report Type: 
  Country: None (occurrence: None)
  Receive Date: 20120124
  Receipt Date: 20111011
  Transmission Date: 20120608
  Serious: No
  Sender: FDA-Public Use
  Company Number: US-AMGEN-USASP2011052471

PATIENT
  Sex: Female

DRUGS (6)
  1. LEVOTHYROXINE SODIUM [Concomitant]
  2. LYSINE [Concomitant]
  3. LORATADINE [Concomitant]
  4. PROLIA [Suspect]
     Indication: OSTEOPOROSIS POSTMENOPAUSAL
     Dosage: 60 MG, Q6MO
     Dates: start: 20110101
  5. ASPIRIN [Concomitant]
  6. CALCIUM PLUS VITAMIN D [Concomitant]

REACTIONS (8)
  - ERYTHEMA [None]
  - SKIN EXFOLIATION [None]
  - BONE PAIN [None]
  - PAIN IN EXTREMITY [None]
  - FATIGUE [None]
  - RASH PRURITIC [None]
  - VITAMIN D DEFICIENCY [None]
  - RASH [None]
